FAERS Safety Report 9976808 (Version 1)
Quarter: 2014Q1

REPORT INFORMATION
  Report Type: Report from Study
  Country: US (occurrence: US)
  Receive Date: 20140306
  Receipt Date: 20140306
  Transmission Date: 20141002
  Serious: No
  Sender: FDA-Public Use
  Company Number: US-ABBVIE-13P-163-1166263-00

PATIENT
  Age: 65 Year
  Sex: Female

DRUGS (9)
  1. HUMIRA [Suspect]
     Indication: CROHN^S DISEASE
     Dates: start: 20130906, end: 20130906
  2. HUMIRA [Suspect]
     Dates: start: 20130920, end: 20130920
  3. HUMIRA [Suspect]
     Dates: start: 20131004
  4. POTASSIUM [Concomitant]
     Indication: BLOOD POTASSIUM DECREASED
  5. HYDROCHLOROTHIAZIDE [Concomitant]
     Indication: DEHYDRATION
  6. COREG [Concomitant]
     Indication: BLOOD PRESSURE
  7. SIMVASTATIN [Concomitant]
     Indication: PRODUCT USED FOR UNKNOWN INDICATION
  8. SYNTHROID [Concomitant]
     Indication: BLOOD THYROID STIMULATING HORMONE DECREASED
  9. CELEXA [Concomitant]
     Indication: NERVOUS SYSTEM DISORDER

REACTIONS (3)
  - Fatigue [Not Recovered/Not Resolved]
  - Somnolence [Not Recovered/Not Resolved]
  - Activities of daily living impaired [Not Recovered/Not Resolved]
